FAERS Safety Report 7860908-1 (Version None)
Quarter: 2011Q4

REPORT INFORMATION
  Report Type: 
  Country: None (occurrence: None)
  Receive Date: 20111025
  Receipt Date: 20111012
  Transmission Date: 20120403
  Serious: Yes (Other)
  Sender: FDA-Public Use
  Company Number: 2011AP001852

PATIENT
  Age: 32 Year
  Sex: Female

DRUGS (11)
  1. CODEINE PHOSPHATE [Concomitant]
  2. DROSPIRENONE [Concomitant]
  3. DICLOFENAC SODIUM [Concomitant]
  4. ACETAMINOPHEN [Concomitant]
  5. ELETRIPTAN [Concomitant]
  6. LANSOPRAZOLE [Concomitant]
  7. PREGABALIN [Concomitant]
  8. ETHINYL ESTRADIOL [Concomitant]
  9. BARIUM [Concomitant]
  10. TOPIRAMATE [Suspect]
     Indication: MIGRAINE
     Dates: start: 20110725, end: 20110810
  11. GABAPENTIN [Concomitant]

REACTIONS (5)
  - MEMORY IMPAIRMENT [None]
  - VISUAL IMPAIRMENT [None]
  - ANGER [None]
  - FATIGUE [None]
  - CONSTIPATION [None]
